FAERS Safety Report 21298501 (Version 1)
Quarter: 2022Q3

REPORT INFORMATION
  Report Type: Spontaneous
  Country: US (occurrence: None)
  Receive Date: 20220903
  Receipt Date: 20220903
  Transmission Date: 20221027
  Serious: Yes (Disabling)
  Sender: FDA-Public Use
  Company Number: None

PATIENT
  Age: 62 Year
  Sex: Male
  Weight: 108 kg

DRUGS (9)
  1. CITROMA [Suspect]
     Active Substance: MAGNESIUM CITRATE
     Indication: Colonoscopy
     Dosage: OTHER STRENGTH : 10 FL OZ;?OTHER QUANTITY : 1 OUNCE(S);?FREQUENCY : DAILY;?
     Route: 048
  2. OMEPRAZOLE [Concomitant]
     Active Substance: OMEPRAZOLE
  3. VENLAFAXINE HYDROCHLORIDE [Concomitant]
     Active Substance: VENLAFAXINE HYDROCHLORIDE
  4. RISPERIDONE [Concomitant]
     Active Substance: RISPERIDONE
  5. INCRUSE ELLIPTA (UMEDIDINIUM) [Concomitant]
  6. ALBUTEROL SULFATE [Concomitant]
     Active Substance: ALBUTEROL SULFATE
  7. ECHINACEA [Concomitant]
     Active Substance: ECHINACEA, UNSPECIFIED
  8. DRONABINOL [Concomitant]
     Active Substance: DRONABINOL
  9. IBUPROFEN [Concomitant]
     Active Substance: IBUPROFEN

REACTIONS (2)
  - Recalled product administered [None]
  - Product contamination microbial [None]

NARRATIVE: CASE EVENT DATE: 20220820
